FAERS Safety Report 8272522-7 (Version None)
Quarter: 2012Q2

REPORT INFORMATION
  Report Type: 
  Country: None (occurrence: None)
  Receive Date: 20120410
  Receipt Date: 20120328
  Transmission Date: 20120825
  Serious: Yes (Other)
  Sender: FDA-Public Use
  Company Number: BR-ROCHE-1055612

PATIENT
  Sex: Female
  Weight: 77 kg

DRUGS (4)
  1. SIMVASTATIN [Concomitant]
     Route: 065
  2. MIOSAN [Concomitant]
     Route: 065
  3. ACTEMRA [Suspect]
     Indication: RHEUMATOID ARTHRITIS
     Dosage: LATEST DOSE  WAS GIVEN ON 06/MAR/2012
     Route: 042
     Dates: start: 20101020
  4. TYLEX (BRAZIL) [Concomitant]
     Route: 065

REACTIONS (1)
  - ARTHRALGIA [None]
